FAERS Safety Report 25008731 (Version 4)
Quarter: 2025Q2

REPORT INFORMATION
  Report Type: Spontaneous
  Country: AR (occurrence: AR)
  Receive Date: 20250225
  Receipt Date: 20250410
  Transmission Date: 20250716
  Serious: No
  Sender: PFIZER
  Company Number: AR-PFIZER INC-202500038853

PATIENT
  Age: 9 Year
  Sex: Male

DRUGS (1)
  1. GENOTROPIN [Suspect]
     Active Substance: SOMATROPIN
     Indication: Foetal growth restriction
     Dates: start: 20240312

REACTIONS (4)
  - Device mechanical issue [Unknown]
  - Device defective [Unknown]
  - Product communication issue [Unknown]
  - Off label use [Unknown]

NARRATIVE: CASE EVENT DATE: 20240312
